FAERS Safety Report 7203999-3 (Version None)
Quarter: 2010Q4

REPORT INFORMATION
  Report Type: 
  Country: None (occurrence: None)
  Receive Date: 20101230
  Receipt Date: 20101221
  Transmission Date: 20110411
  Serious: No
  Sender: FDA-Public Use
  Company Number: US-PFIZER INC-2010178487

PATIENT
  Age: 66 Year
  Sex: Female

DRUGS (4)
  1. LIPITOR [Suspect]
     Dosage: UNK
  2. NABUMETONE [Suspect]
     Dosage: UNK
  3. VALSARTAN [Suspect]
     Dosage: UNK
  4. ACTONEL [Suspect]
     Dosage: UNK

REACTIONS (1)
  - ARTHRALGIA [None]
